FAERS Safety Report 15620348 (Version 1)
Quarter: 2018Q4

REPORT INFORMATION
  Report Type: Spontaneous
  Country: AR (occurrence: AR)
  Receive Date: 20181115
  Receipt Date: 20181115
  Transmission Date: 20190205
  Serious: Yes (Other)
  Sender: FDA-Public Use
  Company Number: AR-AMGEN-ARGSP2018118336

PATIENT
  Age: 64 Year
  Sex: Female

DRUGS (1)
  1. ENBREL [Suspect]
     Active Substance: ETANERCEPT
     Indication: PSORIATIC ARTHROPATHY
     Dosage: 50 MG, WEEKLY
     Route: 065
     Dates: start: 20170331

REACTIONS (11)
  - Visual impairment [Not Recovered/Not Resolved]
  - Injection site urticaria [Recovered/Resolved]
  - Cataract [Not Recovered/Not Resolved]
  - Product storage error [Unknown]
  - Device issue [Unknown]
  - Injection site pain [Recovered/Resolved]
  - Pain in extremity [Not Recovered/Not Resolved]
  - Blood cholesterol abnormal [Not Recovered/Not Resolved]
  - Pain [Not Recovered/Not Resolved]
  - Product administration error [Unknown]
  - Injection site erythema [Recovered/Resolved]

NARRATIVE: CASE EVENT DATE: 2017
